FAERS Safety Report 11899147 (Version 1)
Quarter: 2016Q1

REPORT INFORMATION
  Report Type: Spontaneous
  Country: GB (occurrence: GB)
  Receive Date: 20160108
  Receipt Date: 20160108
  Transmission Date: 20160526
  Serious: Yes (Disabling)
  Sender: FDA-Public Use
  Company Number: GB-PFIZER INC-2016004829

PATIENT
  Age: 73 Year
  Sex: Female
  Weight: 96 kg

DRUGS (10)
  1. DOXYCYCLINE MONOHYDRATE [Suspect]
     Active Substance: DOXYCYCLINE
     Dosage: UNK
     Route: 048
     Dates: start: 20151229, end: 20151229
  2. CETRABEN /01007601/ [Concomitant]
     Dosage: UNK USE AS DIRECTED
     Dates: start: 20140925
  3. LOSARTAN. [Concomitant]
     Active Substance: LOSARTAN
     Dosage: 1 DF, 1X/DAY
     Dates: start: 20150812
  4. BISOPROLOL [Concomitant]
     Active Substance: BISOPROLOL
     Dosage: 1 DF, 2X/DAY
     Dates: start: 20150812
  5. FUROSEMIDE. [Concomitant]
     Active Substance: FUROSEMIDE
     Dosage: 1 DF, 1X/DAY EACH MORNING
     Dates: start: 20150812
  6. ATORVASTATIN [Concomitant]
     Active Substance: ATORVASTATIN
     Dosage: 1 DF, 1X/DAY
     Dates: start: 20151204
  7. AMOXICILLIN. [Concomitant]
     Active Substance: AMOXICILLIN
     Dosage: 1 DF, 3X/DAY
     Dates: start: 20151229
  8. ORTHO-GYNEST [Concomitant]
     Dosage: 1 DF, 1X/DAY NOCTE
     Dates: start: 20141028
  9. FENBID [Concomitant]
     Active Substance: IBUPROFEN
     Dosage: 1 DF, 3X/DAY
     Dates: start: 20151204
  10. WARFARIN SODIUM. [Concomitant]
     Active Substance: WARFARIN SODIUM
     Dosage: 1 DF, AS DIRECTED
     Dates: start: 20150812

REACTIONS (4)
  - Presyncope [Unknown]
  - Vomiting [Recovered/Resolved]
  - Circulatory collapse [Unknown]
  - Pyrexia [Unknown]

NARRATIVE: CASE EVENT DATE: 20151229
